FAERS Safety Report 8198452-7 (Version None)
Quarter: 2012Q1

REPORT INFORMATION
  Report Type: 
  Country: None (occurrence: None)
  Receive Date: 20120309
  Receipt Date: 20111229
  Transmission Date: 20120608
  Serious: No
  Sender: FDA-Public Use
  Company Number: US-AMGEN-USASP2011069288

PATIENT
  Age: 70 Year
  Sex: Female

DRUGS (9)
  1. FISH OIL [Concomitant]
     Dosage: UNK
  2. CALCIUM [Concomitant]
     Dosage: UNK
  3. MULTI-VITAMINS [Concomitant]
     Dosage: UNK
  4. ANTIHYPERTENSIVES [Concomitant]
     Indication: HYPERTENSION
  5. PROLIA [Suspect]
     Indication: OSTEOPOROSIS POSTMENOPAUSAL
     Dosage: 60 MG, Q6MO
     Route: 058
     Dates: start: 20111104
  6. PRAVACHOL [Concomitant]
     Dosage: UNK
  7. VITAMIN D [Concomitant]
     Dosage: UNK
  8. XALATAN [Concomitant]
     Dosage: UNK
     Route: 047
  9. CO-Q10-CHLORELLA [Concomitant]
     Dosage: UNK

REACTIONS (5)
  - BURNING SENSATION [None]
  - NEURALGIA [None]
  - DEPRESSION [None]
  - PAIN IN EXTREMITY [None]
  - ANXIETY [None]
